FAERS Safety Report 5934463-7 (Version None)
Quarter: 2008Q4

REPORT INFORMATION
  Report Type: 
  Country: None (occurrence: None)
  Receive Date: 20081027
  Receipt Date: 20081015
  Transmission Date: 20090506
  Serious: Yes (Congenital Anomaly)
  Sender: FDA-Public Use
  Company Number: 8038009

PATIENT
  Sex: Male

DRUGS (4)
  1. KEPPRA [Suspect]
     Indication: EPILEPSY
     Dosage: 750 MG 2/D TRP
     Route: 064
     Dates: end: 20080801
  2. VITAMIN TAB [Concomitant]
  3. FOLIC ACID [Concomitant]
  4. CELEXA [Concomitant]

REACTIONS (3)
  - ACROCHORDON [None]
  - MATERNAL DRUGS AFFECTING FOETUS [None]
  - POLYDACTYLY [None]
